FAERS Safety Report 5931447-X (Version None)
Quarter: 2008Q4

REPORT INFORMATION
  Report Type: 
  Country: None (occurrence: None)
  Receive Date: 20081024
  Receipt Date: 20081024
  Transmission Date: 20090506
  Serious: Yes (Other)
  Sender: FDA-Public Use
  Company Number: None

PATIENT
  Age: 57 Year
  Sex: Female
  Weight: 67.586 kg

DRUGS (3)
  1. BUPROPION HCL [Suspect]
     Indication: MENOPAUSAL SYMPTOMS
     Dosage: ONE PER DAY
     Dates: start: 20080630
  2. ZOLOFT [Concomitant]
  3. PROMETRIUM [Concomitant]

REACTIONS (7)
  - ANXIETY [None]
  - DEPRESSION [None]
  - DIZZINESS [None]
  - HEADACHE [None]
  - MEMORY IMPAIRMENT [None]
  - MOOD SWINGS [None]
  - THERAPEUTIC RESPONSE UNEXPECTED WITH DRUG SUBSTITUTION [None]
